FAERS Safety Report 5311737-4 (Version None)
Quarter: 2007Q2

REPORT INFORMATION
  Report Type: 
  Country: None (occurrence: None)
  Receive Date: 20070426
  Receipt Date: 20070426
  Transmission Date: 20071010
  Serious: Yes (Hospitalization)
  Sender: FDA-Public Use
  Company Number: None

PATIENT
  Age: 39 Year
  Sex: Male
  Weight: 76.2043 kg

DRUGS (1)
  1. LEVAQUIN [Suspect]
     Indication: GASTROINTESTINAL DISORDER
     Dosage: 500 MG   QD   PO
     Route: 048
     Dates: start: 20070417, end: 20070423

REACTIONS (2)
  - CHEST PAIN [None]
  - PAIN IN EXTREMITY [None]
